FAERS Safety Report 9802769 (Version 1)
Quarter: 2014Q1

REPORT INFORMATION
  Report Type: Spontaneous
  Country: FR (occurrence: FR)
  Receive Date: 20140108
  Receipt Date: 20140108
  Transmission Date: 20141002
  Serious: Yes (Hospitalization)
  Sender: FDA-Public Use
  Company Number: FR-ROCHE-1329636

PATIENT
  Age: 72 Year
  Sex: Female

DRUGS (5)
  1. PEGASYS [Suspect]
     Indication: HEPATITIS C
     Route: 058
     Dates: start: 20111220, end: 201210
  2. COPEGUS [Suspect]
     Indication: HEPATITIS C
     Dosage: 2 TABLETS/MORNING AND 3 TABLETS/EVENING
     Route: 048
     Dates: start: 20111220, end: 201210
  3. NEORECORMON [Suspect]
     Indication: HEPATITIS C
     Route: 058
     Dates: start: 201201, end: 201210
  4. INCIVO [Suspect]
     Indication: HEPATITIS C
     Route: 048
     Dates: start: 20120514, end: 201210
  5. VICTRELIS [Concomitant]
     Route: 065
     Dates: start: 20120120

REACTIONS (2)
  - Dementia [Not Recovered/Not Resolved]
  - Cognitive disorder [Not Recovered/Not Resolved]
